FAERS Safety Report 21187183 (Version 1)
Quarter: 2022Q3

REPORT INFORMATION
  Report Type: Spontaneous
  Country: US (occurrence: None)
  Receive Date: 20220808
  Receipt Date: 20220808
  Transmission Date: 20221027
  Serious: No
  Sender: FDA-Public Use
  Company Number: None

PATIENT
  Age: 35 Year
  Sex: Male
  Weight: 68.4 kg

DRUGS (6)
  1. MONTELUKAST [Suspect]
     Active Substance: MONTELUKAST SODIUM
     Indication: Asthma
     Dosage: OTHER QUANTITY : 1 TABLET(S);?FREQUENCY : DAILY;?
     Route: 048
     Dates: start: 20180101, end: 20220629
  2. Flovent HFA 220mcg 1  puf 2 times per day [Concomitant]
  3. Bupropion HCL 300mg 1 per day [Concomitant]
  4. Ipratropium Bromide 0.03% 2 sprays 3 times per day [Concomitant]
  5. Fluticasone Propionate 50mcg 1 per day [Concomitant]
  6. Cetirizine Hydrochloride 10mg 1 per day [Concomitant]

REACTIONS (6)
  - Product used for unknown indication [None]
  - Anxiety [None]
  - Depression [None]
  - Suicidal ideation [None]
  - Aggression [None]
  - Lethargy [None]

NARRATIVE: CASE EVENT DATE: 20200702
